FAERS Safety Report 17909648 (Version 3)
Quarter: 2020Q3

REPORT INFORMATION
  Report Type: Spontaneous
  Country: US (occurrence: US)
  Receive Date: 20200617
  Receipt Date: 20200812
  Transmission Date: 20201103
  Serious: No
  Sender: FDA-Public Use
  Company Number: US-STRONGBRIDGE BIOPHARMA-2020-STR-000140

PATIENT
  Sex: Female

DRUGS (2)
  1. KEVEYIS [Suspect]
     Active Substance: DICHLORPHENAMIDE
     Indication: FAMILIAL PERIODIC PARALYSIS
     Dosage: 1/2 TABLET IN THE MORNING AND 1 TABLET IN THE EVENING
     Route: 048
  2. KEVEYIS [Suspect]
     Active Substance: DICHLORPHENAMIDE
     Dosage: 25 MG, BID
     Route: 048

REACTIONS (10)
  - Confusional state [Recovering/Resolving]
  - Fall [Unknown]
  - Confusional state [Unknown]
  - Limb injury [Unknown]
  - Skin ulcer [Not Recovered/Not Resolved]
  - Rash [Recovering/Resolving]
  - Wrong technique in product usage process [Unknown]
  - Dysarthria [Unknown]
  - Rash [Not Recovered/Not Resolved]
  - Wrong technique in product usage process [Recovering/Resolving]
